FAERS Safety Report 8595246-5 (Version None)
Quarter: 2012Q3

REPORT INFORMATION
  Report Type: 
  Country: None (occurrence: None)
  Receive Date: 20120815
  Receipt Date: 20120329
  Transmission Date: 20120928
  Serious: Yes (Hospitalization, Other)
  Sender: FDA-Public Use
  Company Number: US-009507513-2010SP051451

PATIENT

DRUGS (2)
  1. NUVARING [Suspect]
     Indication: CONTRACEPTION
     Dosage: UNK UNK, QM
     Dates: start: 20090101, end: 20090809
  2. NUVARING [Suspect]
     Indication: MENSTRUAL DISORDER

REACTIONS (5)
  - DYSURIA [None]
  - PULMONARY INFARCTION [None]
  - CERVICAL DYSPLASIA [None]
  - BACK PAIN [None]
  - PULMONARY EMBOLISM [None]
